FAERS Safety Report 10290610 (Version 3)
Quarter: 2015Q2

REPORT INFORMATION
  Report Type: Report from Study
  Country: US (occurrence: US)
  Receive Date: 20140710
  Receipt Date: 20150506
  Transmission Date: 20150821
  Serious: Yes (Other)
  Sender: FDA-Public Use
  Company Number: US-GILEAD-2014-0107788

PATIENT
  Age: 79 Year
  Sex: Female
  Weight: 83.91 kg

DRUGS (19)
  1. ASPIRIN                            /00002701/ [Concomitant]
     Active Substance: ASPIRIN
  2. MULTIVITAMIN                       /07504101/ [Concomitant]
     Active Substance: VITAMINS
  3. NAC                                /00082801/ [Concomitant]
  4. TOPROL XL [Concomitant]
     Active Substance: METOPROLOL SUCCINATE
  5. AMBRISENTAN [Suspect]
     Active Substance: AMBRISENTAN
     Indication: PULMONARY ARTERIAL HYPERTENSION
     Dosage: 10 MG, QD
     Route: 065
     Dates: start: 20140319
  6. ADCIRCA [Concomitant]
     Active Substance: TADALAFIL
  7. CLONAZEPAM. [Concomitant]
     Active Substance: CLONAZEPAM
  8. DILTIAZEM [Concomitant]
     Active Substance: DILTIAZEM
  9. SYNTHROID [Concomitant]
     Active Substance: LEVOTHYROXINE SODIUM
  10. TORSEMIDE. [Concomitant]
     Active Substance: TORSEMIDE
  11. AMBRISENTAN [Suspect]
     Active Substance: AMBRISENTAN
     Dosage: 5 MG, QD
     Route: 065
     Dates: start: 20140122
  12. DIOVAN [Concomitant]
     Active Substance: VALSARTAN
  13. VITAMIN D3 [Concomitant]
     Active Substance: CHOLECALCIFEROL
  14. OMEPRAZOLE. [Concomitant]
     Active Substance: OMEPRAZOLE
  15. CARDIZEM [Concomitant]
     Active Substance: DILTIAZEM HYDROCHLORIDE
  16. PAROXETINE [Concomitant]
     Active Substance: PAROXETINE\PAROXETINE HYDROCHLORIDE
  17. TADALAFIL [Concomitant]
     Active Substance: TADALAFIL
  18. LASIX [Concomitant]
     Active Substance: FUROSEMIDE
  19. ROSUVASTATIN [Concomitant]
     Active Substance: ROSUVASTATIN

REACTIONS (5)
  - Dialysis [Unknown]
  - Transfusion [Unknown]
  - Faeces discoloured [Unknown]
  - Haematocrit decreased [Unknown]
  - Haemoglobin decreased [Unknown]
